FAERS Safety Report 12697830 (Version 6)
Quarter: 2016Q4

REPORT INFORMATION
  Report Type: Report from Study
  Country: IT (occurrence: IT)
  Receive Date: 20160830
  Receipt Date: 20161118
  Transmission Date: 20170207
  Serious: Yes (Other)
  Sender: FDA-Public Use
  Company Number: IT-EISAI MEDICAL RESEARCH-EC-2016-019784

PATIENT
  Age: 74 Year
  Sex: Female
  Weight: 54 kg

DRUGS (11)
  1. DOMPERIDONE [Concomitant]
     Active Substance: DOMPERIDONE
  2. EUTIROX [Concomitant]
     Active Substance: LEVOTHYROXINE SODIUM
  3. CALCIUM [Concomitant]
     Active Substance: CALCIUM
  4. LENVATINIB [Suspect]
     Active Substance: LENVATINIB
     Route: 048
     Dates: start: 20160922, end: 20161019
  5. PAROXETINE. [Concomitant]
     Active Substance: PAROXETINE
  6. ROCALTROL [Concomitant]
     Active Substance: CALCITRIOL
  7. DELAPRIL [Concomitant]
     Active Substance: DELAPRIL
  8. LENVATINIB [Suspect]
     Active Substance: LENVATINIB
     Indication: THYROID CANCER
     Route: 048
     Dates: start: 20160729, end: 20160823
  9. LANSOPRAZOLE. [Concomitant]
     Active Substance: LANSOPRAZOLE
  10. LENVATINIB [Suspect]
     Active Substance: LENVATINIB
     Route: 048
     Dates: start: 20160908, end: 20160921
  11. LENVATINIB [Suspect]
     Active Substance: LENVATINIB
     Route: 048
     Dates: start: 20161020

REACTIONS (1)
  - Toxic leukoencephalopathy [Recovered/Resolved]

NARRATIVE: CASE EVENT DATE: 20160824
